FAERS Safety Report 9797956 (Version 1)
Quarter: 2014Q1

REPORT INFORMATION
  Report Type: Spontaneous
  Country: FR (occurrence: FR)
  Receive Date: 20140106
  Receipt Date: 20140106
  Transmission Date: 20141002
  Serious: Yes (Hospitalization)
  Sender: FDA-Public Use
  Company Number: FR-MERCK-1312FRA011558

PATIENT
  Age: 37 Year
  Sex: Female

DRUGS (6)
  1. ORGALUTRAN [Suspect]
     Indication: IN VITRO FERTILISATION
     Dosage: 1 DF, QD
     Route: 058
     Dates: start: 20130225, end: 20130301
  2. GONADOTROPHINE CHORIONIQUE ENDO 5000 UI/1ML [Suspect]
     Indication: IN VITRO FERTILISATION
     Dosage: 1 DF, ONCE
     Route: 030
     Dates: start: 20130302, end: 20130302
  3. GONAL-F [Suspect]
     Indication: IN VITRO FERTILISATION
     Dosage: 125 IU, QD
     Route: 058
     Dates: start: 20130220, end: 20130224
  4. GONAL-F [Suspect]
     Dosage: 100 IU, ONCE
     Route: 058
     Dates: start: 20130225, end: 20130225
  5. GONAL-F [Suspect]
     Dosage: 75 IU, QD
     Route: 058
     Dates: start: 20130226, end: 20130227
  6. GONAL-F [Suspect]
     Dosage: 100 IU, QD
     Route: 058
     Dates: start: 20130228, end: 20130301

REACTIONS (4)
  - Haematocrit increased [Recovered/Resolved]
  - Pleural effusion [Recovered/Resolved]
  - Ascites [Recovered/Resolved]
  - Ovarian hyperstimulation syndrome [Recovered/Resolved]
